FAERS Safety Report 5920446-X (Version None)
Quarter: 2008Q4

REPORT INFORMATION
  Report Type: 
  Country: None (occurrence: None)
  Receive Date: 20081016
  Receipt Date: 20081006
  Transmission Date: 20090506
  Serious: Yes (Hospitalization)
  Sender: FDA-Public Use
  Company Number: DE-WYE-H05875508

PATIENT
  Sex: Male

DRUGS (9)
  1. PANTOZOL [Suspect]
     Indication: GASTRITIS
     Route: 048
     Dates: start: 20080301, end: 20080101
  2. PANTOZOL [Suspect]
     Indication: HELICOBACTER INFECTION
     Route: 048
     Dates: start: 20080711, end: 20080813
  3. PANTOZOL [Suspect]
     Route: 048
     Dates: start: 20080815, end: 20080101
  4. METHIMAZOLE [Concomitant]
     Indication: HYPERTHYROIDISM
     Route: 065
  5. AMOXICILLIN [Suspect]
     Indication: GASTRITIS
     Route: 048
     Dates: start: 20080301, end: 20080101
  6. AMOXICILLIN [Suspect]
     Indication: HELICOBACTER INFECTION
  7. METHIMAZOLE [Concomitant]
     Dosage: UNSPECIFIED
     Route: 065
  8. CLARITHROMYCIN [Suspect]
     Indication: GASTRITIS
     Route: 048
     Dates: start: 20080301, end: 20080101
  9. CLARITHROMYCIN [Suspect]
     Indication: HELICOBACTER INFECTION

REACTIONS (2)
  - RENAL FAILURE ACUTE [None]
  - TUBULOINTERSTITIAL NEPHRITIS [None]
